FAERS Safety Report 8938112 (Version 1)
Quarter: 2012Q4

REPORT INFORMATION
  Report Type: Spontaneous
  Country: US (occurrence: None)
  Receive Date: 20121121
  Receipt Date: 20121121
  Transmission Date: 20130627
  Serious: Yes (Hospitalization)
  Sender: FDA-Public Use
  Company Number: AUR-APL-2012-04864

PATIENT
  Age: 96 Year
  Sex: Female

DRUGS (1)
  1. PRAMIPEXOLE [Suspect]
     Indication: RESTLESS LEG SYNDROME
     Dates: start: 20121025, end: 20121029

REACTIONS (2)
  - Orthostatic hypotension [None]
  - Fall [None]
